FAERS Safety Report 12130709 (Version 1)
Quarter: 2016Q1

REPORT INFORMATION
  Report Type: Spontaneous
  Country: US (occurrence: None)
  Receive Date: 20160229
  Receipt Date: 20160229
  Transmission Date: 20160526
  Serious: Yes (Other)
  Sender: FDA-Public Use
  Company Number: None

PATIENT
  Age: 24 Year
  Sex: Female
  Weight: 77.11 kg

DRUGS (1)
  1. GENERIC DEPAKOTE ER (PRIOR TO 2014 [Suspect]
     Active Substance: DIVALPROEX SODIUM
     Indication: BIPOLAR DISORDER
     Dosage: PRIOR TO 2014
     Route: 048

REACTIONS (4)
  - Product substitution issue [None]
  - Dyskinesia [None]
  - Muscle spasms [None]
  - Tremor [None]

NARRATIVE: CASE EVENT DATE: 2013
